FAERS Safety Report 9718973 (Version 1)
Quarter: 2013Q4

REPORT INFORMATION
  Report Type: Spontaneous
  Country: US (occurrence: None)
  Receive Date: 20131125
  Receipt Date: 20131125
  Transmission Date: 20140711
  Serious: Yes (Hospitalization)
  Sender: FDA-Public Use
  Company Number: IPC201311-000475

PATIENT
  Age: 59 Year
  Sex: Female

DRUGS (6)
  1. METFORMIN HYDROCHLORIDE [Suspect]
  2. CIMETIDINE [Suspect]
  3. FLUVASTATIN (FLUVASTATIN) (FLUVASTATIN) [Concomitant]
  4. ATENOLOL (ATENOLOL) (ATENOLOL) [Concomitant]
  5. FENOFIBRATE (FENOFIBRATE) (FENOFIBRATE) [Concomitant]
  6. LISINOPRIL (LISINOPRIL) (LISINOPRIL) [Concomitant]

REACTIONS (11)
  - Lactic acidosis [None]
  - Renal failure acute [None]
  - Pancreatitis acute [None]
  - Drug interaction [None]
  - Diarrhoea [None]
  - Gastrooesophageal reflux disease [None]
  - Cardiac murmur [None]
  - Haemoglobin decreased [None]
  - Blood magnesium decreased [None]
  - Aspartate aminotransferase increased [None]
  - Alanine aminotransferase increased [None]
